FAERS Safety Report 6429710-1 (Version None)
Quarter: 2009Q4

REPORT INFORMATION
  Report Type: 
  Country: None (occurrence: None)
  Receive Date: 20091106
  Receipt Date: 20091029
  Transmission Date: 20100525
  Serious: Yes (Other)
  Sender: FDA-Public Use
  Company Number: US-BIOGENIDEC-2009BI035301

PATIENT
  Sex: Female

DRUGS (2)
  1. AVONEX [Suspect]
     Indication: MULTIPLE SCLEROSIS
     Route: 030
     Dates: start: 20020801, end: 20070101
  2. AMANTADINE [Concomitant]

REACTIONS (8)
  - ARTHRALGIA [None]
  - GASTROINTESTINAL NEOPLASM [None]
  - HALLUCINATION [None]
  - INFLUENZA LIKE ILLNESS [None]
  - INJECTION SITE PAIN [None]
  - OEDEMA PERIPHERAL [None]
  - POLYP [None]
  - RENAL FAILURE [None]
